FAERS Safety Report 26088574 (Version 2)
Quarter: 2025Q4

REPORT INFORMATION
  Report Type: Spontaneous
  Country: US (occurrence: US)
  Receive Date: 20251125
  Receipt Date: 20251211
  Transmission Date: 20260118
  Serious: No
  Sender: PFIZER
  Company Number: US-PFIZER INC-202500226738

PATIENT
  Age: 8 Year
  Sex: Female

DRUGS (1)
  1. NGENLA [Suspect]
     Active Substance: SOMATROGON-GHLA
     Dosage: 13 MG

REACTIONS (9)
  - Anxiety [Unknown]
  - Exposure via skin contact [Unknown]
  - Injection site mass [Unknown]
  - Pain [Unknown]
  - Product odour abnormal [Unknown]
  - Injection site haemorrhage [Unknown]
  - Device leakage [Unknown]
  - Device mechanical issue [Unknown]
  - Accidental exposure to product [Unknown]

NARRATIVE: CASE EVENT DATE: 20251116
